FAERS Safety Report 11843865 (Version 1)
Quarter: 2015Q4

REPORT INFORMATION
  Report Type: Spontaneous
  Country: GB (occurrence: GB)
  Receive Date: 20151217
  Receipt Date: 20151217
  Transmission Date: 20160305
  Serious: Yes (Hospitalization, Disabling)
  Sender: FDA-Public Use
  Company Number: GB-ROCHE-790421367001

PATIENT
  Age: 73 Year
  Sex: Male

DRUGS (1)
  1. VALIUM [Suspect]
     Active Substance: DIAZEPAM
     Indication: LIGHT ANAESTHESIA
     Route: 013

REACTIONS (2)
  - Incorrect route of drug administration [Unknown]
  - Ischaemia [Recovered/Resolved with Sequelae]
